FAERS Safety Report 13013582 (Version 2)
Quarter: 2017Q1

REPORT INFORMATION
  Report Type: Spontaneous
  Country: EG (occurrence: EG)
  Receive Date: 20161209
  Receipt Date: 20170105
  Transmission Date: 20170428
  Serious: Yes (Hospitalization)
  Sender: FDA-Public Use
  Company Number: EG-WEST-WARD PHARMACEUTICALS CORP.-EG-H14001-16-02754

PATIENT
  Age: 6 Year
  Sex: Male
  Weight: 21 kg

DRUGS (1)
  1. UNITREXATE [Suspect]
     Active Substance: METHOTREXATE
     Indication: ACUTE LYMPHOCYTIC LEUKAEMIA
     Route: 042
     Dates: start: 20161112, end: 20161112

REACTIONS (5)
  - Toxicity to various agents [Unknown]
  - Immunosuppressant drug level increased [Unknown]
  - Stomatitis [Recovered/Resolved]
  - Tachypnoea [Recovered/Resolved]
  - Metabolic acidosis [Recovered/Resolved]

NARRATIVE: CASE EVENT DATE: 201611
